FAERS Safety Report 4335510-9 (Version None)
Quarter: 2004Q2

REPORT INFORMATION
  Report Type: 
  Country: None (occurrence: None)
  Receive Date: 20040406
  Receipt Date: 20040324
  Transmission Date: 20050107
  Serious: Yes (Hospitalization)
  Sender: FDA-Public Use
  Company Number: HQWYE061724MAR04

PATIENT
  Age: 63 Year
  Sex: Female
  Weight: 70.82 kg

DRUGS (7)
  1. ZOSYN [Suspect]
     Dosage: 3.375 G 1X PER 12 HR
  2. CYTARABINE [Suspect]
     Indication: ACUTE MYELOID LEUKAEMIA
     Dosage: 534 MG DAILY, INTRAVENOUS DRIP
     Route: 041
     Dates: start: 20040312, end: 20040318
  3. DAUNOMYCIN (DAUNORUBICIN) [Suspect]
     Indication: ACUTE MYELOID LEUKAEMIA
     Dosage: SEE IMAGE
     Route: 042
     Dates: start: 20040312, end: 20040312
  4. DAUNOMYCIN (DAUNORUBICIN) [Suspect]
     Indication: ACUTE MYELOID LEUKAEMIA
     Dosage: SEE IMAGE
     Route: 042
     Dates: start: 20040314
  5. DIFLUCAN [Suspect]
     Dosage: 100 MG DAILY
  6. HYDREA [Suspect]
     Dosage: 3 G
     Dates: start: 20040312, end: 20040312
  7. VANCOCIN HCL [Suspect]
     Dosage: 1 G 1 X PER 12 HR

REACTIONS (7)
  - BLOOD BILIRUBIN INCREASED [None]
  - BLOOD PHOSPHORUS INCREASED [None]
  - BLOOD POTASSIUM INCREASED [None]
  - DIALYSIS [None]
  - HYPOTENSION [None]
  - HYPOXIA [None]
  - RENAL FAILURE [None]
